FAERS Safety Report 23462627 (Version 1)
Quarter: 2024Q1

REPORT INFORMATION
  Report Type: Spontaneous
  Country: CA (occurrence: CA)
  Receive Date: 20240131
  Receipt Date: 20240131
  Transmission Date: 20240410
  Serious: Yes (Other)
  Sender: FDA-Public Use
  Company Number: CA-FreseniusKabi-FK202401412

PATIENT
  Age: 30 Year
  Sex: Female
  Weight: 92 kg

DRUGS (16)
  1. IRINOTECAN HYDROCHLORIDE [Suspect]
     Active Substance: IRINOTECAN HYDROCHLORIDE
     Indication: Product used for unknown indication
     Dosage: DOSAGE FORM: SOLUTION INTRAVENOUS
     Route: 065
  2. LEUCOVORIN CALCIUM [Suspect]
     Active Substance: LEUCOVORIN CALCIUM
     Indication: Product used for unknown indication
     Dosage: ROUTE: UNKNOWN
  3. FLUOROURACIL [Suspect]
     Active Substance: FLUOROURACIL
     Indication: Product used for unknown indication
     Dosage: FORM OF ADMIN. NOT SPECIFIED?ROUTE: UNKNOWN
  4. LEUCOVORIN [Suspect]
     Active Substance: LEUCOVORIN\LEUCOVORIN CALCIUM
     Indication: Product used for unknown indication
     Dosage: ROUTE: UNKNOWN
  5. NABILONE [Suspect]
     Active Substance: NABILONE
     Indication: Product used for unknown indication
     Dosage: FORM OF ADMIN. NOT SPECIFIED?ROUTE: UNKNOWN
  6. TRASTUZUMAB [Suspect]
     Active Substance: TRASTUZUMAB
     Indication: Oesophageal carcinoma
     Dosage: FORM OF ADMIN. SOLUTION FOR INFUSION?ROUTE OF ADMIN. INTRAVENOUS (NOT OTHERWISE SPECIFIED) ( INT )
  7. TRASTUZUMAB [Suspect]
     Active Substance: TRASTUZUMAB
     Dosage: FORM OF ADMIN. SOLUTION FOR INFUSION?ROUTE OF ADMIN. INTRAVENOUS (NOT OTHERWISE SPECIFIED) ( INT )
  8. TRASTUZUMAB [Suspect]
     Active Substance: TRASTUZUMAB
     Dosage: FORM OF ADMIN. SOLUTION FOR INFUSION?ROUTE OF ADMIN. INTRAVENOUS (NOT OTHERWISE SPECIFIED) ( INT )
  9. ACETAMINOPHEN [Concomitant]
     Active Substance: ACETAMINOPHEN
     Indication: Product used for unknown indication
     Dosage: FORM OF ADMIN. TABLET?ROUTE OF ADMIN. ORAL
  10. ACETAMINOPHEN [Concomitant]
     Active Substance: ACETAMINOPHEN
     Dosage: FORM OF ADMIN. TABLET?ROUTE: UNKNOWN
  11. BENADRYL [Concomitant]
     Active Substance: DIPHENHYDRAMINE HYDROCHLORIDE
     Indication: Product used for unknown indication
     Dosage: FORM OF ADMIN. NOT SPECIFIED?ROUTE: UNKNOWN
  12. BENADRYL [Concomitant]
     Active Substance: DIPHENHYDRAMINE HYDROCHLORIDE
     Dosage: FORM OF ADMIN. NOT SPECIFIED?ROUTE OF ADMIN. ORAL ( ORA )
  13. DIPHENHYDRAMINE [Concomitant]
     Active Substance: DIPHENHYDRAMINE
     Indication: Product used for unknown indication
     Dosage: ROUTE: UNKNOWN
  14. DIPHENHYDRAMINE [Concomitant]
     Active Substance: DIPHENHYDRAMINE
     Dosage: ROUTE OF ADMIN. ORAL ( ORA )
  15. IBUPROFEN [Concomitant]
     Active Substance: IBUPROFEN
     Indication: Product used for unknown indication
     Dosage: FORM OF ADMIN. NOT SPECIFIED?ROUTE: UNKNOWN
  16. TYLENOL [Concomitant]
     Active Substance: ACETAMINOPHEN
     Indication: Product used for unknown indication
     Dosage: FORM OF ADMIN. NOT SPECIFIED?ROUTE: UNKNOWN

REACTIONS (12)
  - Abdominal pain upper [Not Recovered/Not Resolved]
  - Cough [Not Recovered/Not Resolved]
  - Device occlusion [Not Recovered/Not Resolved]
  - Feeling abnormal [Not Recovered/Not Resolved]
  - Gastric infection [Not Recovered/Not Resolved]
  - Hypoaesthesia [Not Recovered/Not Resolved]
  - Hypotension [Not Recovered/Not Resolved]
  - Malaise [Not Recovered/Not Resolved]
  - Nausea [Not Recovered/Not Resolved]
  - Paraesthesia [Not Recovered/Not Resolved]
  - Platelet count decreased [Not Recovered/Not Resolved]
  - Rhinorrhoea [Not Recovered/Not Resolved]
